FAERS Safety Report 6616659-4 (Version None)
Quarter: 2010Q1

REPORT INFORMATION
  Report Type: 
  Country: None (occurrence: None)
  Receive Date: 20100305
  Receipt Date: 20100215
  Transmission Date: 20100710
  Serious: Yes (Death)
  Sender: FDA-Public Use
  Company Number: JP-ROCHE-685841

PATIENT
  Age: 62 Year
  Sex: Male

DRUGS (6)
  1. AVASTIN [Suspect]
     Indication: RECTAL CANCER RECURRENT
     Dosage: DOSE FORM: INJECTION ACTION TAKEN: DISCONTINUED
     Route: 041
     Dates: start: 20080501, end: 20100101
  2. ELPLAT [Suspect]
     Indication: RECTAL CANCER RECURRENT
     Dosage: ROUTE: INTRAVENOUS DRIP
     Route: 041
  3. 5-FU [Suspect]
     Indication: RECTAL CANCER RECURRENT
     Dosage: ROUTE: INTRAVENOUS BOLUS DOSE FORM: INJECTION
     Route: 040
  4. 5-FU [Suspect]
     Dosage: ROUTE: INTRAVENOUS DRIP DOSE FORM: INJECTION
     Route: 040
  5. 5-FU [Suspect]
     Route: 041
  6. LEVOFOLINATE [Suspect]
     Indication: RECTAL CANCER RECURRENT
     Dosage: DOSE FORM: INJECTION
     Route: 041

REACTIONS (3)
  - INTESTINAL OBSTRUCTION [None]
  - INTESTINAL PERFORATION [None]
  - PULMONARY FIBROSIS [None]
